FAERS Safety Report 15837547 (Version 1)
Quarter: 2019Q1

REPORT INFORMATION
  Report Type: Spontaneous
  Country: US (occurrence: US)
  Receive Date: 20190117
  Receipt Date: 20190117
  Transmission Date: 20190417
  Serious: Yes (Other)
  Sender: FDA-Public Use
  Company Number: US-BAYER-2018-208004

PATIENT
  Age: 62 Year
  Sex: Female
  Weight: 82 kg

DRUGS (21)
  1. TAMSULOSIN [Concomitant]
     Active Substance: TAMSULOSIN
     Dosage: 0.4 MG
  2. HYDROMORPHONE [Concomitant]
     Active Substance: HYDROMORPHONE
     Dosage: 8 MG
  3. OXYCODONE [Concomitant]
     Active Substance: OXYCODONE
     Dosage: 20 MG
  4. OXYCONTIN [Concomitant]
     Active Substance: OXYCODONE HYDROCHLORIDE
     Dosage: 40 MG
  5. ALPRAZOLAM. [Concomitant]
     Active Substance: ALPRAZOLAM
  6. HYDROCHLOROTHIAZIDE;LISINOPRIL [Concomitant]
     Dosage: 10 MG
  7. BREO ELLIPTA [Concomitant]
     Active Substance: FLUTICASONE FUROATE\VILANTEROL TRIFENATATE
     Dosage: UNK
     Dates: start: 20180922
  8. RAPAFLO [Concomitant]
     Active Substance: SILODOSIN
     Dosage: 8 MG
  9. OMEPRAZOLE. [Concomitant]
     Active Substance: OMEPRAZOLE
     Dosage: 20 MG
  10. DICYCLOMINE [DICYCLOVERINE HYDROCHLORIDE] [Concomitant]
     Dosage: 10 MG
     Dates: start: 20180910
  11. DR. SCHOLLS CORN REMOVERS [Suspect]
     Active Substance: SALICYLIC ACID
     Dosage: UNK
     Route: 065
  12. DR. SCHOLLS DURAGEL CORN REMOVERS [Suspect]
     Active Substance: SALICYLIC ACID
     Dosage: UNK
     Route: 061
     Dates: start: 201811, end: 201811
  13. RESTASIS [Concomitant]
     Active Substance: CYCLOSPORINE
  14. ANORO ELLIPTA [Concomitant]
     Active Substance: UMECLIDINIUM BROMIDE\VILANTEROL TRIFENATATE
  15. DICYCLOMINE HYDROCHLORIDE. [Concomitant]
     Active Substance: DICYCLOMINE HYDROCHLORIDE
     Dosage: 10 MG
  16. PREDNISONE. [Concomitant]
     Active Substance: PREDNISONE
     Dosage: 50 MG
  17. METOCLOPRAMIDE. [Concomitant]
     Active Substance: METOCLOPRAMIDE
     Dosage: 10 MG
  18. MORPHINE [Concomitant]
     Active Substance: MORPHINE
     Dosage: 15 MG
  19. LISINOPRIL HYDROCHLORTHIAZIDE SANDOZ [Concomitant]
  20. ESCITALOPRAM [Concomitant]
     Active Substance: ESCITALOPRAM OXALATE
     Dosage: 20 MG
  21. ELMIRON [Concomitant]
     Active Substance: PENTOSAN POLYSULFATE SODIUM
     Dosage: 100 MG

REACTIONS (6)
  - Pain [Not Recovered/Not Resolved]
  - Fourth degree chemical burn of skin [Recovered/Resolved]
  - Localised infection [Not Recovered/Not Resolved]
  - Application site discolouration [Not Recovered/Not Resolved]
  - Application site discolouration [Not Recovered/Not Resolved]
  - Skin lesion [Not Recovered/Not Resolved]

NARRATIVE: CASE EVENT DATE: 201811
